FAERS Safety Report 4603073-6 (Version None)
Quarter: 2005Q1

REPORT INFORMATION
  Report Type: 
  Country: None (occurrence: None)
  Receive Date: 20050307
  Receipt Date: 20050218
  Transmission Date: 20050727
  Serious: Yes (Hospitalization)
  Sender: FDA-Public Use
  Company Number: DSA_25791_2005

PATIENT
  Age: 51 Year
  Sex: Female

DRUGS (7)
  1. TAVOR [Suspect]
     Dosage: 10 TAB ONCE PO
     Route: 048
     Dates: start: 20050126, end: 20050126
  2. ALCOHOL [Suspect]
     Dosage: DF ONCE PO
     Route: 048
     Dates: start: 20050126, end: 20050126
  3. APONAL [Suspect]
     Dosage: 10 TAB ONCE PO
     Route: 048
     Dates: start: 20050126, end: 20050126
  4. PANTOPRAZOLE SODIUM [Suspect]
     Dosage: 6 TAB ONCE PO
     Route: 048
     Dates: start: 20050126, end: 20050126
  5. THOMAPYRIN [Suspect]
     Dosage: 2 TAB ONCE PO
     Route: 048
     Dates: start: 20050126, end: 20050126
  6. TREVILOR RETARD [Suspect]
     Dosage: 13 CAP ONCE PO
     Route: 048
     Dates: start: 20050126, end: 20050126
  7. DIMENHYDRINATE [Suspect]
     Dosage: 11 TAB ONCE PO
     Route: 048
     Dates: start: 20050126, end: 20050126

REACTIONS (9)
  - AGITATION [None]
  - ALANINE AMINOTRANSFERASE INCREASED [None]
  - ASPARTATE AMINOTRANSFERASE INCREASED [None]
  - GAMMA-GLUTAMYLTRANSFERASE INCREASED [None]
  - INTENTIONAL MISUSE [None]
  - INTERNATIONAL NORMALISED RATIO DECREASED [None]
  - MEAN CELL VOLUME INCREASED [None]
  - PROTHROMBIN TIME SHORTENED [None]
  - TACHYCARDIA [None]
